FAERS Safety Report 14626341 (Version 1)
Quarter: 2018Q1

REPORT INFORMATION
  Report Type: Spontaneous
  Country: NL (occurrence: NL)
  Receive Date: 20180312
  Receipt Date: 20180312
  Transmission Date: 20180509
  Serious: Yes (Hospitalization)
  Sender: FDA-Public Use
  Company Number: NL-BAYER-2018-041632

PATIENT
  Age: 38 Year
  Sex: Male

DRUGS (1)
  1. MOXIFLOXACIN ORAL [Suspect]
     Active Substance: MOXIFLOXACIN

REACTIONS (3)
  - Pathogen resistance [None]
  - Off label use [None]
  - Product use in unapproved indication [None]
